FAERS Safety Report 4853861-6 (Version None)
Quarter: 2005Q4

REPORT INFORMATION
  Report Type: 
  Country: None (occurrence: None)
  Receive Date: 20051213
  Receipt Date: 20051205
  Transmission Date: 20060501
  Serious: Yes (Other)
  Sender: FDA-Public Use
  Company Number: 2005163685

PATIENT
  Age: 18 Year
  Sex: Male
  Weight: 88.4514 kg

DRUGS (1)
  1. MECLIZINE [Suspect]
     Indication: INTENTIONAL OVERDOSE
     Dosage: 8 TABLETS ONCE, ORAL
     Route: 048
     Dates: start: 20051205, end: 20051205

REACTIONS (2)
  - FEELING ABNORMAL [None]
  - INTENTIONAL OVERDOSE [None]
